FAERS Safety Report 6055313-7 (Version None)
Quarter: 2009Q1

REPORT INFORMATION
  Report Type: 
  Country: None (occurrence: None)
  Receive Date: 20090122
  Receipt Date: 20090107
  Transmission Date: 20090719
  Serious: Yes (Death, Life-Threatening)
  Sender: FDA-Public Use
  Company Number: 2009SP000153

PATIENT
  Age: 31 Year
  Sex: Male

DRUGS (10)
  1. LUNESTA [Suspect]
     Dosage: ORAL
     Route: 048
  2. METHADONE HCL [Suspect]
  3. ACETAMINOPHEN AND OXYCODONE HCL [Suspect]
  4. HYDROCODONE BITARTRATE [Suspect]
  5. UNKNOWN [Concomitant]
  6. CYCLOBENZAPRINE HCL [Suspect]
  7. DULOXETINE [Suspect]
  8. RISPERIDONE [Suspect]
  9. CON MEDS [Concomitant]
  10. PREV MEDS [Concomitant]

REACTIONS (2)
  - CARDIO-RESPIRATORY ARREST [None]
  - COMPLETED SUICIDE [None]
